FAERS Safety Report 11914909 (Version 3)
Quarter: 2016Q3

REPORT INFORMATION
  Report Type: Spontaneous
  Country: GB (occurrence: GB)
  Receive Date: 20160113
  Receipt Date: 20160912
  Transmission Date: 20161109
  Serious: Yes (Other)
  Sender: FDA-Public Use
  Company Number: GB-ALLERGAN-1600497US

PATIENT
  Sex: Female

DRUGS (4)
  1. BOTOX [Suspect]
     Active Substance: ONABOTULINUMTOXINA
     Indication: SKIN WRINKLING
     Dosage: 4 UNITS, SINGLE
     Route: 030
     Dates: start: 20160104, end: 20160104
  2. BOTOX [Suspect]
     Active Substance: ONABOTULINUMTOXINA
     Dosage: 9 UNITS, SINGLE
     Route: 030
     Dates: start: 20151214, end: 20151214
  3. BOTOX [Suspect]
     Active Substance: ONABOTULINUMTOXINA
     Dosage: 9 UNITS, SINGLE
     Route: 030
     Dates: start: 20151214, end: 20151214
  4. BOTOX [Suspect]
     Active Substance: ONABOTULINUMTOXINA
     Indication: SKIN WRINKLING
     Dosage: 4 UNITS, SINGLE
     Route: 030
     Dates: start: 20160104, end: 20160104

REACTIONS (6)
  - Throat tightness [Recovered/Resolved]
  - Hypersensitivity [Recovered/Resolved]
  - Swelling [Unknown]
  - Injection site pruritus [Recovered/Resolved]
  - Injection site swelling [Recovered/Resolved]
  - Erythema [Unknown]

NARRATIVE: CASE EVENT DATE: 201601
